FAERS Safety Report 9100361 (Version 3)
Quarter: 2014Q1

REPORT INFORMATION
  Report Type: Spontaneous
  Country: GB (occurrence: GB)
  Receive Date: 20130215
  Receipt Date: 20140121
  Transmission Date: 20141002
  Serious: Yes (Other)
  Sender: FDA-Public Use
  Company Number: GB-NOVOPROD-365734

PATIENT
  Age: 79 Year
  Sex: Female
  Weight: 70.3 kg

DRUGS (2)
  1. NOVOMIX 30 FLEXPEN [Suspect]
     Indication: TYPE 2 DIABETES MELLITUS
     Dosage: 25 IU, BID
     Route: 065
     Dates: start: 201209
  2. NOVOMIX 30 FLEXPEN [Suspect]
     Dosage: 33 IU, QD
     Route: 065

REACTIONS (2)
  - Lower respiratory tract infection [Recovered/Resolved]
  - Blood glucose increased [Recovered/Resolved]
